FAERS Safety Report 17194324 (Version 2)
Quarter: 2022Q4

REPORT INFORMATION
  Report Type: Spontaneous
  Country: DE (occurrence: DE)
  Receive Date: 20191224
  Receipt Date: 20221023
  Transmission Date: 20230113
  Serious: Yes (Hospitalization, Other)
  Sender: FDA-Public Use
  Company Number: DE-ADRED-04066-01

PATIENT
  Age: 55 Year
  Sex: Female

DRUGS (2)
  1. ASPIRIN [Suspect]
     Active Substance: ASPIRIN
     Indication: Product used for unknown indication
     Dosage: 100 MILLIGRAM (EINAMLIG)
     Route: 065
  2. IBUPROFEN [Suspect]
     Active Substance: IBUPROFEN
     Indication: Product used for unknown indication
     Dosage: 600 MILLIGRAM, EVERY WEEK (600 MG/1 WOCHE, 1-0-0-0)
     Route: 065

REACTIONS (9)
  - Melaena [Unknown]
  - Duodenal ulcer [Unknown]
  - Blood loss anaemia [Unknown]
  - General physical health deterioration [Unknown]
  - Abdominal pain [Unknown]
  - Dizziness [Unknown]
  - Diarrhoea [Unknown]
  - Vomiting [Unknown]
  - Product prescribing error [Unknown]
